FAERS Safety Report 5959633-3 (Version None)
Quarter: 2008Q4

REPORT INFORMATION
  Report Type: 
  Country: None (occurrence: None)
  Receive Date: 20081120
  Receipt Date: 20081112
  Transmission Date: 20090506
  Serious: Yes (Other)
  Sender: FDA-Public Use
  Company Number: US-ABBOTT-08P-163-0487984-00

PATIENT
  Sex: Female
  Weight: 48.578 kg

DRUGS (2)
  1. HUMIRA [Suspect]
     Indication: RHEUMATOID ARTHRITIS
     Dates: start: 20050101, end: 20080514
  2. HUMIRA [Suspect]

REACTIONS (5)
  - ARTHRALGIA [None]
  - ARTHROPATHY [None]
  - JOINT SWELLING [None]
  - NASOPHARYNGITIS [None]
  - SINUSITIS [None]
